FAERS Safety Report 6356823-5 (Version None)
Quarter: 2009Q3

REPORT INFORMATION
  Report Type: 
  Country: None (occurrence: None)
  Receive Date: 20090911
  Receipt Date: 20090911
  Transmission Date: 20100115
  Serious: No
  Sender: FDA-Public Use
  Company Number: None

PATIENT
  Age: 72 Year
  Sex: Male
  Weight: 92.307 kg

DRUGS (1)
  1. SIMVASTATIN 40 MG DR REDDY'S LAB [Suspect]
     Indication: BLOOD CHOLESTEROL INCREASED
     Dosage: 40MG TAB (1) PER DAY  (94 PILLS TAKEN)
     Dates: end: 20090823

REACTIONS (6)
  - ABDOMINAL DISCOMFORT [None]
  - ARTHRALGIA [None]
  - ASTHENIA [None]
  - FATIGUE [None]
  - MUSCLE DISORDER [None]
  - PAIN IN EXTREMITY [None]
